FAERS Safety Report 8237515 (Version 3)
Quarter: 2013Q2

REPORT INFORMATION
  Report Type: Spontaneous
  Country: JP (occurrence: JP)
  Receive Date: 20111109
  Receipt Date: 20130423
  Transmission Date: 20140414
  Serious: Yes (Death, Hospitalization)
  Sender: FDA-Public Use
  Company Number: JP-BAYER-2011-104727

PATIENT
  Age: 83 Year
  Sex: Male
  Weight: 50.79 kg

DRUGS (7)
  1. BAYASPIRIN [Suspect]
     Dosage: 100 MG
     Route: 048
     Dates: start: 1998, end: 201008
  2. BAYASPIRIN [Suspect]
     Dosage: 100 MG, UNK
     Route: 048
     Dates: start: 201012, end: 2011
  3. CELECOXIB [Suspect]
     Indication: BACK PAIN
     Dosage: 200 MG, QD
     Route: 048
     Dates: start: 2011
  4. CELECOXIB [Suspect]
     Indication: BACK PAIN
     Dosage: DAILY DOSE 400 MG
     Route: 048
     Dates: start: 2011
  5. FLOMOXEF SODIUM [Concomitant]
     Indication: PNEUMONIA
     Dosage: UNK
     Dates: start: 201101
  6. TICLOPIDINE HYDROCHLORIDE [Concomitant]
     Dosage: 200 MG, QD
     Route: 048
     Dates: start: 2008, end: 2011
  7. SARPOGRELATE HYDROCHLORIDE [Concomitant]
     Dosage: 300 MG, QD
     Route: 048
     Dates: start: 2008, end: 2011

REACTIONS (9)
  - Ileal ulcer [Recovering/Resolving]
  - Gastrointestinal perforation [None]
  - Peritonitis [None]
  - Melaena [None]
  - Shock haemorrhagic [None]
  - Melaena [None]
  - Pneumonia [None]
  - Pneumonia aspiration [None]
  - Death [Fatal]
